FAERS Safety Report 6243481-3 (Version None)
Quarter: 2009Q2

REPORT INFORMATION
  Report Type: 
  Country: None (occurrence: None)
  Receive Date: 20090624
  Receipt Date: 20090615
  Transmission Date: 20091009
  Serious: Yes (Other)
  Sender: FDA-Public Use
  Company Number: US-AVENTIS-200910755US

PATIENT
  Sex: Male
  Weight: 104.32 kg

DRUGS (18)
  1. LOVENOX [Suspect]
     Indication: DEEP VEIN THROMBOSIS
     Dates: start: 20080901, end: 20081001
  2. LOVENOX [Suspect]
     Dates: start: 20081124
  3. LOVENOX [Suspect]
     Route: 058
     Dates: start: 20090119
  4. LOVENOX [Suspect]
     Dosage: DOSE: 1/MG/KG/SC
     Route: 058
     Dates: start: 20090122
  5. LOVENOX [Suspect]
     Indication: ATRIAL FIBRILLATION
     Dates: start: 20080901, end: 20081001
  6. LOVENOX [Suspect]
     Dates: start: 20081124
  7. LOVENOX [Suspect]
     Route: 058
     Dates: start: 20090119
  8. LOVENOX [Suspect]
     Dosage: DOSE: 1/MG/KG/SC
     Route: 058
     Dates: start: 20090122
  9. COUMADIN [Concomitant]
     Dosage: DOSE: UNK
  10. ALPRAZOLAM [Concomitant]
     Dosage: DOSE: UNK
     Route: 048
  11. SOTALOL HYDROCHLORIDE [Concomitant]
     Dosage: DOSE: UNK
     Route: 048
  12. LIPITOR [Concomitant]
     Dosage: DOSE: UNK
     Route: 048
  13. QVAR 40 [Concomitant]
     Dosage: DOSE: UNK
  14. METOPROLOL SUCCINATE [Concomitant]
     Dosage: DOSE: UNK
     Route: 048
  15. LIDODERM [Concomitant]
     Dosage: DOSE: UNK
  16. FLOMAX [Concomitant]
     Dosage: DOSE: UNK
     Route: 048
  17. FLUTICASONE [Concomitant]
     Dosage: DOSE: UNK
  18. TYLENOL (CAPLET) [Concomitant]
     Dosage: DOSE: UNK

REACTIONS (19)
  - ABDOMINAL PAIN [None]
  - ABSCESS [None]
  - ATRIAL FIBRILLATION [None]
  - CELLULITIS [None]
  - ENTEROCOCCAL INFECTION [None]
  - ERYTHEMA [None]
  - ESCHERICHIA INFECTION [None]
  - HAEMATOMA INFECTION [None]
  - INCORRECT ROUTE OF DRUG ADMINISTRATION [None]
  - INDURATION [None]
  - INFLAMMATION [None]
  - INJECTION SITE HAEMATOMA [None]
  - INTERNATIONAL NORMALISED RATIO DECREASED [None]
  - LIVER FUNCTION TEST ABNORMAL [None]
  - NEOPLASM [None]
  - PSEUDOMONAS INFECTION [None]
  - PYREXIA [None]
  - WOUND COMPLICATION [None]
  - WOUND SECRETION [None]
